FAERS Safety Report 5581158-8 (Version None)
Quarter: 2007Q4

REPORT INFORMATION
  Report Type: 
  Country: None (occurrence: None)
  Receive Date: 20071227
  Receipt Date: 20071213
  Transmission Date: 20080405
  Serious: Yes (Life-Threatening)
  Sender: FDA-Public Use
  Company Number: GXKR2007NZ10685

PATIENT
  Age: 77 Year
  Sex: Female

DRUGS (7)
  1. METOPROLOL (NGX)(METOPROLOL) UNKNOWN [Suspect]
     Indication: ARRHYTHMIA
     Dosage: 47.5 MG, REPEATED AT 4H
  2. DILTIAZEM [Suspect]
  3. ADENOSINE [Suspect]
     Dosage: 6 MG, RAPID IV BOLUS, INTRAVENOUS
     Route: 042
  4. ACETYLSALICYLIC ACID SRT [Concomitant]
  5. OMEPRAZOLE [Concomitant]
  6. LEVOTHYROXINE SODIUM [Concomitant]
  7. FUROSEMIDE [Concomitant]

REACTIONS (12)
  - ACUTE CORONARY SYNDROME [None]
  - ATRIAL FLUTTER [None]
  - ATRIOVENTRICULAR BLOCK COMPLETE [None]
  - CARDIOVERSION [None]
  - DRUG INTERACTION [None]
  - HYPOTENSION [None]
  - INTUBATION [None]
  - LEFT VENTRICULAR DYSFUNCTION [None]
  - LOSS OF CONSCIOUSNESS [None]
  - PACEMAKER GENERATED RHYTHM [None]
  - VENTRICULAR ASYSTOLE [None]
  - VOMITING [None]
